FAERS Safety Report 7530765-1 (Version None)
Quarter: 2011Q2

REPORT INFORMATION
  Report Type: 
  Country: None (occurrence: None)
  Receive Date: 20110607
  Receipt Date: 20110531
  Transmission Date: 20111010
  Serious: Yes (Hospitalization, Other)
  Sender: FDA-Public Use
  Company Number: US-MERCK-1104USA00408

PATIENT
  Age: 77 Year
  Sex: Female

DRUGS (10)
  1. METAMUCIL-2 [Concomitant]
     Route: 048
  2. PRINIVIL [Suspect]
     Indication: HYPERTENSION
     Route: 048
  3. COZAAR [Suspect]
     Indication: HYPERTENSION
     Route: 048
     Dates: start: 20101101
  4. CADUET [Concomitant]
     Dosage: 1 TAB DAILY
     Route: 048
  5. TEKTURNA [Concomitant]
     Route: 048
  6. LOPRESSOR [Concomitant]
     Route: 048
  7. TEKTURNA [Concomitant]
     Route: 065
  8. LIPITOR [Concomitant]
     Route: 048
  9. MAGNESIUM OXIDE [Concomitant]
     Route: 048
  10. CALCIUM (UNSPECIFIED) [Concomitant]
     Route: 048

REACTIONS (4)
  - ABDOMINAL PAIN [None]
  - NAUSEA [None]
  - DIARRHOEA [None]
  - BLOOD PRESSURE INADEQUATELY CONTROLLED [None]
